FAERS Safety Report 7128007-4 (Version None)
Quarter: 2010Q4

REPORT INFORMATION
  Report Type: 
  Country: None (occurrence: None)
  Receive Date: 20101130
  Receipt Date: 20101117
  Transmission Date: 20110411
  Serious: Yes (Other)
  Sender: FDA-Public Use
  Company Number: PHHY2010CA78673

PATIENT
  Sex: Female

DRUGS (3)
  1. ACLASTA [Suspect]
     Dosage: UNK
     Dates: start: 20081211
  2. ACLASTA [Suspect]
     Dosage: UNK
     Dates: start: 20091118
  3. ACLASTA [Suspect]
     Dosage: 5 MG/100 ML
     Route: 042
     Dates: start: 20101115

REACTIONS (3)
  - DYSARTHRIA [None]
  - PARKINSONISM [None]
  - TREMOR [None]
